FAERS Safety Report 5599933-2 (Version None)
Quarter: 2008Q1

REPORT INFORMATION
  Report Type: 
  Country: None (occurrence: None)
  Receive Date: 20080123
  Receipt Date: 20080108
  Transmission Date: 20080703
  Serious: Yes (Other)
  Sender: FDA-Public Use
  Company Number: US-AMGEN-KDL257614

PATIENT
  Sex: Male

DRUGS (10)
  1. ARANESP [Suspect]
     Indication: RENAL FAILURE CHRONIC
     Dates: start: 20070406
  2. NORVASC [Concomitant]
  3. PHOSLO [Concomitant]
  4. HECTORAL [Concomitant]
  5. LASIX [Concomitant]
  6. EMLA [Concomitant]
  7. VITAMIN CAP [Concomitant]
  8. RENAGEL [Concomitant]
  9. VITAMIN D [Concomitant]
  10. VENOFER [Concomitant]

REACTIONS (2)
  - ANAEMIA [None]
  - HAEMOLYSIS [None]
